FAERS Safety Report 4512109-2 (Version None)
Quarter: 2004Q4

REPORT INFORMATION
  Report Type: 
  Country: None (occurrence: None)
  Receive Date: 20041123
  Receipt Date: 20041111
  Transmission Date: 20050328
  Serious: Yes (Disabling, Other)
  Sender: FDA-Public Use
  Company Number: 001-0981-M0108367

PATIENT
  Age: 52 Year
  Sex: Female
  Weight: 283 kg

DRUGS (2)
  1. LIPITOR [Suspect]
  2. VASERETIC(HYDROCHLOROTHAZIDE, ENALAPRIL MALEATE) [Concomitant]

REACTIONS (11)
  - ARTHRALGIA [None]
  - ARTHRITIS [None]
  - ARTHROPATHY [None]
  - DIABETES MELLITUS [None]
  - DIFFICULTY IN WALKING [None]
  - DYSSTASIA [None]
  - IMPAIRED DRIVING ABILITY [None]
  - MUSCLE TIGHTNESS [None]
  - MUSCULOSKELETAL STIFFNESS [None]
  - MYALGIA [None]
  - PAIN IN EXTREMITY [None]
